FAERS Safety Report 9235886 (Version 1)
Quarter: 2013Q2

REPORT INFORMATION
  Report Type: Not Available
  Country: CN (occurrence: CN)
  Receive Date: 20130417
  Receipt Date: 20130417
  Transmission Date: 20140414
  Serious: Yes (Other)
  Sender: FDA-Public Use
  Company Number: CN-ASTELLAS-2013JP004983

PATIENT
  Sex: Female

DRUGS (1)
  1. MICAFUNGIN [Suspect]
     Indication: ANTIFUNGAL TREATMENT
     Dosage: 50 MG, UID/QD
     Route: 041
     Dates: start: 20111104, end: 20111104

REACTIONS (1)
  - Cardiac failure [Recovering/Resolving]
